FAERS Safety Report 22029909 (Version 1)
Quarter: 2023Q1

REPORT INFORMATION
  Report Type: Spontaneous
  Country: US (occurrence: None)
  Receive Date: 20230220
  Receipt Date: 20230220
  Transmission Date: 20230418
  Serious: No
  Sender: FDA-Public Use
  Company Number: None

PATIENT
  Age: 38 Year
  Sex: Male

DRUGS (1)
  1. MAYZENT [Suspect]
     Active Substance: SIPONIMOD
     Dosage: FREQUENCY : DAILY;?
     Route: 048
     Dates: start: 201907

REACTIONS (3)
  - Pregnancy of partner [None]
  - Exposure via partner [None]
  - Exposure via body fluid [None]

NARRATIVE: CASE EVENT DATE: 20230220
